FAERS Safety Report 13155692 (Version 1)
Quarter: 2017Q1

REPORT INFORMATION
  Report Type: Spontaneous
  Country: US (occurrence: US)
  Receive Date: 20170126
  Receipt Date: 20170126
  Transmission Date: 20170428
  Serious: No
  Sender: FDA-Public Use
  Company Number: US-ROCHE-1037607

PATIENT
  Sex: Female

DRUGS (3)
  1. VALIUM [Suspect]
     Active Substance: DIAZEPAM
     Indication: MUSCLE DISORDER
     Route: 048
  2. VALIUM [Suspect]
     Active Substance: DIAZEPAM
     Indication: MUSCLE DISORDER
  3. ZANTAC [Concomitant]
     Active Substance: RANITIDINE HYDROCHLORIDE
     Indication: BARRETT^S OESOPHAGUS

REACTIONS (4)
  - Therapeutic response decreased [Unknown]
  - Unevaluable event [Unknown]
  - Emotional distress [Not Recovered/Not Resolved]
  - Product quality issue [Unknown]
